FAERS Safety Report 17770837 (Version 2)
Quarter: 2021Q1

REPORT INFORMATION
  Report Type: Spontaneous
  Country: US (occurrence: US)
  Receive Date: 20200512
  Receipt Date: 20210128
  Transmission Date: 20210419
  Serious: No
  Sender: FDA-Public Use
  Company Number: US-SA-2020SA121448

PATIENT
  Age: 35 Year

DRUGS (1)
  1. LOVENOX [Suspect]
     Active Substance: ENOXAPARIN SODIUM
     Indication: PROTEIN C DEFICIENCY
     Dosage: 40 MG, BID
     Route: 065

REACTIONS (2)
  - No adverse event [Unknown]
  - Needle issue [Unknown]
